FAERS Safety Report 19642609 (Version 1)
Quarter: 2021Q3

REPORT INFORMATION
  Report Type: Spontaneous
  Country: US (occurrence: US)
  Receive Date: 20210730
  Receipt Date: 20210730
  Transmission Date: 20211014
  Serious: Yes (Other)
  Sender: FDA-Public Use
  Company Number: US-PFIZER INC-202100920835

PATIENT
  Age: 76 Year
  Sex: Male
  Weight: 112.04 kg

DRUGS (10)
  1. BRAFTOVI [Suspect]
     Active Substance: ENCORAFENIB
     Dosage: 450 MG, 1X/DAY (TAKING 6 BRAFTOVI EARLY MORNING)
     Dates: start: 20210402
  2. VITAMIN B12 [VITAMIN B12 NOS] [Concomitant]
     Active Substance: CYANOCOBALAMIN
     Dosage: 1000 MG, 1X/DAY
  3. MEKTOVI [Suspect]
     Active Substance: BINIMETINIB
     Dosage: 30 MG, 2X/DAY (2 MEKTOVI IN THE EARLY MORNING AND THEN AT NIGHT)
     Dates: start: 20210402
  4. CALCIUM [Concomitant]
     Active Substance: CALCIUM
     Dosage: 600 MG, 2X/DAY
  5. AMBROTOSE [Concomitant]
     Active Substance: ALOE VERA LEAF\GLUCOSAMINE HYDROCHLORIDE\LARIX DECIDUA WOOD\TRAGACANTH
     Dosage: UNK
  6. ASPIRINE [Concomitant]
     Active Substance: ASPIRIN
     Dosage: 81 MG
  7. XGEVA [Concomitant]
     Active Substance: DENOSUMAB
     Indication: METASTASES TO BONE
     Dosage: UNK, MONTHLY
  8. VITAMIN D3 [Concomitant]
     Active Substance: CHOLECALCIFEROL
     Dosage: 50 UG, 1X/DAY (1 OF THOSE A DAY)
  9. DOXAZOSIN MESILATE [Concomitant]
     Active Substance: DOXAZOSIN MESYLATE
     Dosage: 1 MG
  10. VITAMIN C [Concomitant]
     Active Substance: ASCORBIC ACID
     Dosage: 500 MG, 1X/DAY (2 OF THOSE A DAY)

REACTIONS (2)
  - Pathological fracture [Unknown]
  - Limb discomfort [Unknown]
